FAERS Safety Report 5491999-3 (Version None)
Quarter: 2007Q4

REPORT INFORMATION
  Report Type: 
  Country: None (occurrence: None)
  Receive Date: 20071022
  Receipt Date: 20071015
  Transmission Date: 20080405
  Serious: Yes (Other)
  Sender: FDA-Public Use
  Company Number: B0489444A

PATIENT
  Sex: Female

DRUGS (2)
  1. SUMATRIPTAN SUCCINATE [Suspect]
     Indication: MIGRAINE
     Route: 058
     Dates: start: 20010101
  2. SUMATRIPTAN SUCCINATE [Concomitant]
     Route: 048

REACTIONS (4)
  - ABSCESS LIMB [None]
  - INFECTION [None]
  - NAUSEA [None]
  - PYREXIA [None]
